FAERS Safety Report 5913908-2 (Version None)
Quarter: 2008Q4

REPORT INFORMATION
  Report Type: 
  Country: None (occurrence: None)
  Receive Date: 20081009
  Receipt Date: 20081001
  Transmission Date: 20090506
  Serious: Yes (Hospitalization, Other)
  Sender: FDA-Public Use
  Company Number: B0539890A

PATIENT
  Age: 70 Year
  Sex: Male

DRUGS (1)
  1. AMOXICILLIN AND CLAVULANATE POTASSIUM [Suspect]
     Indication: BRONCHOPNEUMONIA

REACTIONS (20)
  - ANAEMIA [None]
  - ANURIA [None]
  - COUGH [None]
  - GENERAL PHYSICAL HEALTH DETERIORATION [None]
  - GENERALISED OEDEMA [None]
  - HYPERCALCAEMIA [None]
  - HYPERKALAEMIA [None]
  - HYPERPHOSPHATAEMIA [None]
  - HYPOALBUMINAEMIA [None]
  - IMMUNOGLOBULINS DECREASED [None]
  - LEUKOCYTOSIS [None]
  - LOBAR PNEUMONIA [None]
  - METABOLIC ACIDOSIS [None]
  - MULTIPLE MYELOMA [None]
  - NAUSEA [None]
  - NEPHRITIS ALLERGIC [None]
  - PRURITUS [None]
  - RASH [None]
  - RENAL FAILURE [None]
  - TACHYPNOEA [None]
